FAERS Safety Report 24223342 (Version 1)
Quarter: 2024Q3

REPORT INFORMATION
  Report Type: Spontaneous
  Country: GB (occurrence: GB)
  Receive Date: 20240819
  Receipt Date: 20240819
  Transmission Date: 20241017
  Serious: Yes (Other)
  Sender: ACCORD
  Company Number: None

PATIENT
  Age: 74 Year
  Sex: Female
  Weight: 103 kg

DRUGS (8)
  1. ATORVASTATIN [Suspect]
     Active Substance: ATORVASTATIN
     Indication: Prophylaxis
     Dates: start: 20240725
  2. TOLTERODINE TARTRATE [Concomitant]
     Active Substance: TOLTERODINE TARTRATE
     Dates: start: 20240514, end: 20240611
  3. PROPRANOLOL [Concomitant]
     Active Substance: PROPRANOLOL HYDROCHLORIDE
     Dates: start: 20231101
  4. ALENDRONIC ACID [Concomitant]
     Active Substance: ALENDRONIC ACID
     Indication: Ill-defined disorder
     Dosage: ONE TO BE TAKEN ON THE SAME DAY EACH WEEK
     Dates: start: 20231101
  5. MOVICOL [Concomitant]
     Active Substance: POLYETHYLENE GLYCOL 3350\POTASSIUM CHLORIDE\SODIUM BICARBONATE\SODIUM CHLORIDE
     Dosage: 1 ONCE DAILY, LEMON, LIME
     Dates: start: 20231101
  6. OMEPRAZOLE [Concomitant]
     Active Substance: OMEPRAZOLE
     Dates: start: 20231101
  7. PREDNISOLONE [Concomitant]
     Active Substance: PREDNISOLONE
     Dosage: USE AS DIRECTED
     Dates: start: 20231101
  8. ESTRADIOL [Concomitant]
     Active Substance: ESTRADIOL
     Dosage: ONE PESSARY INSERTED NIGHTLY FOR 2 WEEKS THEN T
     Dates: start: 20240325, end: 20240725

REACTIONS (6)
  - Headache [Unknown]
  - Cataract [Unknown]
  - Dizziness [Recovered/Resolved]
  - Back pain [Recovered/Resolved]
  - Vision blurred [Recovering/Resolving]
  - Burning sensation [Recovered/Resolved]

NARRATIVE: CASE EVENT DATE: 20240731
